FAERS Safety Report 18782125 (Version 1)
Quarter: 2021Q1

REPORT INFORMATION
  Report Type: Spontaneous
  Country: US (occurrence: US)
  Receive Date: 20210125
  Receipt Date: 20210125
  Transmission Date: 20210419
  Serious: Yes (Life-Threatening, Hospitalization, Other)
  Sender: FDA-Public Use
  Company Number: None

PATIENT
  Age: 71 Year
  Sex: Male
  Weight: 106.5 kg

DRUGS (4)
  1. 0.9% SODIUM CHLORIDE 2500ML X1 [Concomitant]
     Dates: start: 20210113, end: 20210113
  2. VANCOMYCIN 2.25G IV PIGGYBACK X1 [Concomitant]
     Dates: start: 20210113, end: 20210113
  3. BAMLANIVIMAB. [Suspect]
     Active Substance: BAMLANIVIMAB
     Indication: COVID-19
     Dosage: ?          OTHER FREQUENCY:ONCE;?
     Route: 042
  4. CEFEPIME 2G IV PIGGYBACK X1 [Concomitant]
     Dates: start: 20210113, end: 20210113

REACTIONS (7)
  - Pneumopericardium [None]
  - Fall [None]
  - Acute myocardial infarction [None]
  - Air embolism [None]
  - Loss of consciousness [None]
  - Hypoxia [None]
  - Sepsis [None]

NARRATIVE: CASE EVENT DATE: 20210113
